FAERS Safety Report 16707432 (Version 1)
Quarter: 2019Q3

REPORT INFORMATION
  Report Type: Spontaneous
  Country: DE (occurrence: DE)
  Receive Date: 20190815
  Receipt Date: 20190815
  Transmission Date: 20191004
  Serious: Yes (Hospitalization)
  Sender: FDA-Public Use
  Company Number: PHHY2019DE189311

PATIENT
  Age: 8 Year
  Sex: Female
  Weight: 29 kg

DRUGS (1)
  1. CEFPODOXIME [Suspect]
     Active Substance: CEFPODOXIME
     Indication: URINARY TRACT INFECTION
     Dosage: 20 ML, QD (EVERY DAYS 2 SEPARATED DOSES)
     Route: 048
     Dates: start: 20180915, end: 20180916

REACTIONS (2)
  - Condition aggravated [Unknown]
  - Vomiting [Unknown]

NARRATIVE: CASE EVENT DATE: 20180916
